FAERS Safety Report 10173192 (Version 1)
Quarter: 2014Q2

REPORT INFORMATION
  Report Type: Spontaneous
  Country: US (occurrence: US)
  Receive Date: 20140515
  Receipt Date: 20140515
  Transmission Date: 20141212
  Serious: No
  Sender: FDA-Public Use
  Company Number: US-ABBVIE-13P-163-1177686-00

PATIENT
  Age: 29 Year
  Sex: Female
  Weight: 63.56 kg

DRUGS (2)
  1. PROMETRIUM [Suspect]
     Indication: HORMONE LEVEL ABNORMAL
     Dosage: SEE NARRATIVE
     Dates: start: 201311
  2. PROMETRIUM [Suspect]
     Dosage: SEE NARRATIVE
     Dates: start: 201312

REACTIONS (2)
  - Off label use [Not Recovered/Not Resolved]
  - Vaginal haemorrhage [Not Recovered/Not Resolved]
